FAERS Safety Report 19094993 (Version 2)
Quarter: 2021Q2

REPORT INFORMATION
  Report Type: Report from Study
  Country: DO (occurrence: DO)
  Receive Date: 20210405
  Receipt Date: 20210420
  Transmission Date: 20210717
  Serious: Yes (Death, Hospitalization)
  Sender: FDA-Public Use
  Company Number: DO-JNJFOC-20210241247

PATIENT
  Age: 20 Year
  Sex: Male
  Weight: 44.5 kg

DRUGS (1)
  1. STELARA [Suspect]
     Active Substance: USTEKINUMAB
     Indication: CROHN^S DISEASE
     Route: 058
     Dates: start: 20200108

REACTIONS (6)
  - Respiratory distress [Not Recovered/Not Resolved]
  - Death [Fatal]
  - Seizure [Not Recovered/Not Resolved]
  - Crohn^s disease [Unknown]
  - Pneumonia [Unknown]
  - Haemoglobin decreased [Unknown]

NARRATIVE: CASE EVENT DATE: 2021
